FAERS Safety Report 7137375-9 (Version None)
Quarter: 2010Q4

REPORT INFORMATION
  Report Type: 
  Country: None (occurrence: None)
  Receive Date: 20101206
  Receipt Date: 20101123
  Transmission Date: 20110411
  Serious: Yes (Other)
  Sender: FDA-Public Use
  Company Number: PHHY2010CH80292

PATIENT
  Sex: Female

DRUGS (2)
  1. ACLASTA [Suspect]
     Indication: OSTEOPOROSIS
     Dosage: 5 MG
     Route: 042
     Dates: start: 20100928
  2. FOSAMAX [Suspect]
     Dosage: 2 ORAL ADMINISTRATIONS
     Dates: start: 20100801

REACTIONS (2)
  - JAW DISORDER [None]
  - SURGERY [None]
